FAERS Safety Report 4947072-3 (Version None)
Quarter: 2006Q1

REPORT INFORMATION
  Report Type: 
  Country: None (occurrence: None)
  Receive Date: 20060317
  Receipt Date: 20060310
  Transmission Date: 20060701
  Serious: Yes (Death, Hospitalization)
  Sender: FDA-Public Use
  Company Number: US-BRISTOL-MYERS SQUIBB COMPANY-13310099

PATIENT
  Age: 84 Year
  Sex: Male
  Weight: 79 kg

DRUGS (3)
  1. SINEMET [Suspect]
     Indication: PARKINSON'S DISEASE
     Dates: start: 20020101
  2. ACCURETIC [Concomitant]
     Dates: start: 19980101
  3. ASPIRIN [Concomitant]
     Dates: start: 19980101

REACTIONS (3)
  - CARDIO-RESPIRATORY ARREST [None]
  - URINARY TRACT INFECTION [None]
  - UROSEPSIS [None]
